FAERS Safety Report 22643058 (Version 2)
Quarter: 2023Q2

REPORT INFORMATION
  Report Type: Spontaneous
  Country: US (occurrence: US)
  Receive Date: 20230627
  Receipt Date: 20230627
  Transmission Date: 20230722
  Serious: No
  Sender: FDA-Public Use
  Company Number: US-ALCON LABORATORIES-ALC2022US005738

PATIENT
  Age: 74 Year
  Sex: Female

DRUGS (3)
  1. ATROVENT [Suspect]
     Active Substance: IPRATROPIUM BROMIDE
     Indication: Lacrimation increased
     Dosage: UNK
     Route: 065
  2. FLONASE [Suspect]
     Active Substance: FLUTICASONE PROPIONATE
     Indication: Lacrimation increased
     Dosage: UNK
     Route: 045
  3. PATADAY [Suspect]
     Active Substance: OLOPATADINE HYDROCHLORIDE
     Indication: Lacrimation increased
     Dosage: 2 DRP PER EYE, QD
     Route: 047

REACTIONS (2)
  - Therapeutic product effect decreased [Unknown]
  - Vision blurred [Recovered/Resolved]
